FAERS Safety Report 10142949 (Version 2)
Quarter: 2014Q2

REPORT INFORMATION
  Report Type: Spontaneous
  Country: US (occurrence: US)
  Receive Date: 20140430
  Receipt Date: 20140530
  Transmission Date: 20141212
  Serious: Yes (Hospitalization, Other)
  Sender: FDA-Public Use
  Company Number: US-BAYER-2014-063173

PATIENT
  Age: 38 Year
  Sex: Female
  Weight: 68.93 kg

DRUGS (20)
  1. YASMIN [Suspect]
     Indication: CONTRACEPTION
     Dosage: UNK
     Dates: start: 2002, end: 200308
  2. YASMIN [Suspect]
     Indication: UTERINE LEIOMYOMA
  3. YAZ [Suspect]
  4. PHENERGAN [PROMETHAZINE] [Concomitant]
     Dosage: UNK UNK, PRN
  5. VICODIN [Concomitant]
     Dosage: 5/500 MG, PRN
  6. COLACE [Concomitant]
  7. DESFLURANE [Concomitant]
  8. VERSED [Concomitant]
     Dosage: 2 MG, UNK
  9. FENTANYL [Concomitant]
     Route: 042
  10. PROPOFOL [Concomitant]
     Dosage: 330 MG, UNK
  11. LIDOCAINE [Concomitant]
     Dosage: 20 MG, UNK
  12. ANZEMET [Concomitant]
     Dosage: 12.5 MG, UNK
  13. REGLAN [Concomitant]
     Dosage: 10 MG, UNK
  14. DECADRON [DEXAMETHASONE ACETATE] [Concomitant]
     Dosage: 4 MG, UNK
  15. ATROPINE [Concomitant]
     Dosage: 40
  16. NEOSTIGMINE [Concomitant]
     Dosage: 4.0
  17. MARCAINE W/EPINEPHRINE [Concomitant]
  18. CONRAY [IOTALAMATE MEGLUMINE] [Concomitant]
  19. MORPHINE SULFATE [Concomitant]
     Route: 042
  20. ADVIL [IBUPROFEN] [Concomitant]
     Dosage: UNK UNK, PRN

REACTIONS (11)
  - Pulmonary embolism [Recovered/Resolved]
  - Cholecystitis chronic [None]
  - Gallbladder disorder [None]
  - Gallbladder pain [None]
  - Injury [Recovered/Resolved]
  - Pain [None]
  - General physical health deterioration [Recovered/Resolved]
  - Anxiety [None]
  - Emotional distress [None]
  - Pain [Recovered/Resolved]
  - Depression [None]
